FAERS Safety Report 9183534 (Version 3)
Quarter: 2014Q2

REPORT INFORMATION
  Report Type: Spontaneous
  Country: US (occurrence: US)
  Receive Date: 20121101
  Receipt Date: 20140409
  Transmission Date: 20141212
  Serious: Yes (Hospitalization, Disabling, Other)
  Sender: FDA-Public Use
  Company Number: US-009507513-1210USA010269

PATIENT
  Sex: Female
  Weight: 54.42 kg

DRUGS (20)
  1. FOSAMAX [Suspect]
     Indication: OSTEOPOROSIS
     Dosage: 70 MG, UNK
     Route: 048
     Dates: start: 20031212, end: 200612
  2. FOSAMAX PLUS D [Suspect]
     Indication: OSTEOPOROSIS
     Dosage: 70 MG, UNK
     Route: 048
     Dates: start: 20070115, end: 20080728
  3. DIOVAN HCT [Concomitant]
     Indication: HYPERTENSION
     Dosage: 160/25 MG DAILY
     Route: 048
     Dates: start: 20030206
  4. ATENOLOL [Concomitant]
     Indication: HYPERTENSION
     Dosage: 50 MG, UNK
     Dates: start: 20030206, end: 20071113
  5. ATENOLOL [Concomitant]
     Indication: HYPERTENSION
  6. NORVASC [Concomitant]
     Indication: HYPERTENSION
     Dosage: 5 MG, DAILY
     Route: 048
     Dates: start: 20031120
  7. AMLODIPINE [Concomitant]
     Indication: HYPERTENSION
     Dosage: 5 MG, DAILY
     Route: 048
     Dates: start: 20070707, end: 20100410
  8. TIAZAC [Concomitant]
     Indication: HYPERTENSION
     Dosage: UNK
     Dates: start: 20020206, end: 20021007
  9. COLESTIPOL HYDROCHLORIDE [Concomitant]
     Indication: BLOOD CHOLESTEROL INCREASED
     Dosage: UNK
     Dates: start: 20080109, end: 20080606
  10. AMBIEN [Concomitant]
     Indication: INSOMNIA
     Dosage: UNK
     Dates: start: 20020111, end: 20061218
  11. TEMAZEPAM [Concomitant]
     Indication: INSOMNIA
     Dosage: 30 MG, HS
     Route: 048
     Dates: start: 20030318, end: 20120128
  12. LUNESTA [Concomitant]
     Indication: INSOMNIA
     Dosage: UNK
     Dates: start: 20080124, end: 20080124
  13. ALLEGRA [Concomitant]
     Indication: HYPERSENSITIVITY
     Dosage: UNK
     Dates: start: 20020114, end: 20020114
  14. PAROXETINE HYDROCHLORIDE [Concomitant]
     Indication: DEPRESSION
     Dosage: UNK
     Dates: start: 20040402, end: 20090530
  15. TRAZODONE HYDROCHLORIDE [Concomitant]
     Indication: DEPRESSION
     Dosage: 25-50 MG HS
     Route: 048
     Dates: start: 20020318
  16. PAXIL [Concomitant]
     Indication: DEPRESSION
     Dosage: 40-60 MG HS/DAILY
     Route: 048
     Dates: start: 20020318
  17. CALTRATE + D [Concomitant]
     Dosage: UNK
     Dates: start: 1990
  18. VITAMIN D (UNSPECIFIED) [Concomitant]
     Dosage: UNK
     Dates: start: 1950
  19. VITAMINS (UNSPECIFIED) [Concomitant]
     Dosage: UNK
     Dates: start: 1950
  20. METHYLPREDNISOLONE [Concomitant]
     Indication: ASTHMA

REACTIONS (65)
  - Femoral neck fracture [Not Recovered/Not Resolved]
  - Internal fixation of fracture [Unknown]
  - Femur fracture [Unknown]
  - Internal fixation of fracture [Unknown]
  - Fracture nonunion [Unknown]
  - Internal fixation of fracture [Unknown]
  - Wound infection [Unknown]
  - Femur fracture [Unknown]
  - Intramedullary rod insertion [Unknown]
  - Elbow operation [Unknown]
  - Low turnover osteopathy [Not Recovered/Not Resolved]
  - Blindness [Unknown]
  - Deafness bilateral [Unknown]
  - Surgery [Unknown]
  - Anaemia postoperative [Unknown]
  - Cellulitis [Unknown]
  - Device failure [Unknown]
  - Peroneal nerve palsy [Unknown]
  - Surgery [Unknown]
  - Anaemia postoperative [Unknown]
  - Pubis fracture [Recovered/Resolved]
  - Fall [Unknown]
  - Ulna fracture [Unknown]
  - Rheumatoid arthritis [Unknown]
  - Bacterial infection [Unknown]
  - Pain [Unknown]
  - Eye disorder [Unknown]
  - Fungal infection [Unknown]
  - Skin disorder [Unknown]
  - Inflammation [Unknown]
  - Dementia [Unknown]
  - Anaemia [Unknown]
  - Nocturia [Unknown]
  - Increased tendency to bruise [Unknown]
  - Contusion [Unknown]
  - Foot deformity [Unknown]
  - Calcinosis [Unknown]
  - Pubis fracture [Unknown]
  - Cyst [Unknown]
  - Injection site granuloma [Unknown]
  - Fall [Unknown]
  - Osteopenia [Unknown]
  - Pleural calcification [Unknown]
  - Intervertebral disc degeneration [Unknown]
  - Vertebral foraminal stenosis [Unknown]
  - Vascular calcification [Unknown]
  - Hyponatraemia [Recovered/Resolved]
  - Urinary tract infection [Unknown]
  - Dermatomyositis [Unknown]
  - Haematoma [Unknown]
  - Dementia Alzheimer^s type [Unknown]
  - Muscle spasticity [Unknown]
  - Hypotension [Recovered/Resolved]
  - Haematocrit decreased [Recovered/Resolved]
  - Sinus bradycardia [Unknown]
  - Atrioventricular block first degree [Unknown]
  - Hypokalaemia [Unknown]
  - Hypovolaemia [Unknown]
  - Asthenia [Unknown]
  - Dizziness [Unknown]
  - Arthralgia [Unknown]
  - Nausea [Unknown]
  - Diarrhoea [Unknown]
  - Gastrooesophageal reflux disease [Unknown]
  - Vomiting [Unknown]
